FAERS Safety Report 4356782-0 (Version None)
Quarter: 2004Q2

REPORT INFORMATION
  Report Type: 
  Country: None (occurrence: None)
  Receive Date: 20040507
  Receipt Date: 20040427
  Transmission Date: 20050107
  Serious: Yes (Other)
  Sender: FDA-Public Use
  Company Number: 2004-04-1769

PATIENT
  Age: 10 Year
  Sex: Female
  Weight: 45 kg

DRUGS (3)
  1. AERIUS (DESLORATADINE) TABLETS , LIKE CLARINEX' [Suspect]
     Indication: RHINITIS
     Dosage: 1 TAB/DAY ORAL
     Route: 048
     Dates: start: 20040309, end: 20040311
  2. AMOXICILLIN AND CLAVULANATE POTASSIUM [Concomitant]
  3. IBUPROFEN [Concomitant]

REACTIONS (4)
  - ANAPHYLACTIC REACTION [None]
  - BRONCHOSPASM [None]
  - LETHARGY [None]
  - RASH [None]
